FAERS Safety Report 7594108-X (Version None)
Quarter: 2011Q3

REPORT INFORMATION
  Report Type: 
  Country: None (occurrence: None)
  Receive Date: 20110706
  Receipt Date: 20110628
  Transmission Date: 20111222
  Serious: Yes (Other)
  Sender: FDA-Public Use
  Company Number: CN-ABBOTT-11P-035-0726300-00

PATIENT
  Age: 48 Year
  Sex: Male

DRUGS (8)
  1. HUMIRA [Suspect]
     Indication: ANKYLOSING SPONDYLITIS
     Route: 058
     Dates: start: 20101101, end: 20110101
  2. ETANERCEPT [Suspect]
     Indication: ANKYLOSING SPONDYLITIS
     Dates: start: 20090101
  3. COMMON THREEWINGNUT ROOT [Concomitant]
     Indication: ANKYLOSING SPONDYLITIS
     Dates: end: 20110101
  4. HUMIRA [Suspect]
     Route: 058
     Dates: start: 20110101, end: 20110422
  5. METHOTREXATE [Concomitant]
     Indication: ANKYLOSING SPONDYLITIS
     Dates: start: 20110401
  6. SASP [Concomitant]
     Indication: ANKYLOSING SPONDYLITIS
  7. CELEBREX [Concomitant]
     Indication: ANKYLOSING SPONDYLITIS
     Dates: start: 20110401
  8. INFLIXIMAB [Suspect]
     Indication: ANKYLOSING SPONDYLITIS
     Dates: start: 20090901, end: 20101101

REACTIONS (1)
  - THYROID NEOPLASM [None]
